FAERS Safety Report 5814751-5 (Version None)
Quarter: 2008Q3

REPORT INFORMATION
  Report Type: 
  Country: None (occurrence: None)
  Receive Date: 20080718
  Receipt Date: 20080708
  Transmission Date: 20090109
  Serious: Yes (Hospitalization, Other)
  Sender: FDA-Public Use
  Company Number: US-ROCHE-574592

PATIENT
  Age: 61 Year
  Sex: Male

DRUGS (5)
  1. DIAZEPAM [Suspect]
     Indication: SOMNOLENCE
     Route: 065
  2. PEG-INTRON [Suspect]
     Indication: HEPATITIS C
     Dosage: FORM: VIAL
     Route: 065
     Dates: start: 20080501
  3. PEG-INTRON [Suspect]
     Dosage: FORM: VIAL
     Route: 065
     Dates: start: 20080324, end: 20080331
  4. RIBAVIRIN [Suspect]
     Indication: HEPATITIS C
     Route: 048
     Dates: start: 20080501
  5. RIBAVIRIN [Suspect]
     Route: 048
     Dates: start: 20080324, end: 20080331

REACTIONS (5)
  - BLOOD BILIRUBIN INCREASED [None]
  - DEHYDRATION [None]
  - DIARRHOEA [None]
  - ENCEPHALOPATHY [None]
  - POLYURIA [None]
